FAERS Safety Report 9071078 (Version 1)
Quarter: 2013Q1

REPORT INFORMATION
  Report Type: Spontaneous
  Country: US (occurrence: US)
  Receive Date: 20130206
  Receipt Date: 20130206
  Transmission Date: 20140127
  Serious: No
  Sender: FDA-Public Use
  Company Number: US-ALLERGAN-1208459US

PATIENT
  Age: 54 Year
  Sex: Female

DRUGS (3)
  1. RESTASIS? [Suspect]
     Indication: DRY EYE
     Dosage: UNK
     Route: 047
     Dates: start: 20120615, end: 20120618
  2. VIT C [Concomitant]
     Indication: IMMUNE SYSTEM DISORDER
  3. FISH OIL [Concomitant]
     Indication: EYE LUBRICATION THERAPY

REACTIONS (4)
  - Dysgeusia [Unknown]
  - Swollen tongue [Unknown]
  - Incorrect dose administered [Unknown]
  - Rash [Unknown]
